FAERS Safety Report 7207257-2 (Version None)
Quarter: 2010Q4

REPORT INFORMATION
  Report Type: 
  Country: None (occurrence: None)
  Receive Date: 20101230
  Receipt Date: 20101230
  Transmission Date: 20110411
  Serious: Yes (Hospitalization, Other)
  Sender: FDA-Public Use
  Company Number: None

PATIENT
  Age: 29 Year
  Sex: Female
  Weight: 48.9885 kg

DRUGS (9)
  1. GIANVI 3MG/0.02MG TABLETS TEVA [Suspect]
     Indication: CONTRACEPTION
     Dosage: PO
     Route: 048
     Dates: start: 20090601, end: 20101001
  2. GIANVI 3MG/0.02MG TABLETS TEVA [Suspect]
     Indication: MIGRAINE
     Dosage: PO
     Route: 048
     Dates: start: 20090601, end: 20101001
  3. YAZ 3MG/0.02MG TABLETS BERLEX [Suspect]
     Dates: start: 20080901, end: 20090601
  4. ADVAIR [Concomitant]
  5. ALBUTEROL [Concomitant]
  6. CLARINEX D [Concomitant]
  7. PROPOXYPHEN [Concomitant]
  8. ZOFRAN [Concomitant]
  9. KETOROLAC [Concomitant]

REACTIONS (26)
  - ABDOMINAL PAIN UPPER [None]
  - AGORAPHOBIA [None]
  - AMENORRHOEA [None]
  - ANGER [None]
  - ANXIETY [None]
  - BODY TEMPERATURE FLUCTUATION [None]
  - CHEST PAIN [None]
  - COGNITIVE DISORDER [None]
  - CRYING [None]
  - DECREASED APPETITE [None]
  - DEPRESSED MOOD [None]
  - DIARRHOEA [None]
  - DISTURBANCE IN ATTENTION [None]
  - DIZZINESS [None]
  - FATIGUE [None]
  - FEAR [None]
  - HEADACHE [None]
  - IRRITABILITY [None]
  - LIBIDO DECREASED [None]
  - MOOD SWINGS [None]
  - NAUSEA [None]
  - OBSESSIVE-COMPULSIVE DISORDER [None]
  - PANIC ATTACK [None]
  - SLEEP DISORDER [None]
  - THINKING ABNORMAL [None]
  - WEIGHT DECREASED [None]
